FAERS Safety Report 21930989 (Version 1)
Quarter: 2023Q1

REPORT INFORMATION
  Report Type: Report from Study
  Country: CA (occurrence: CA)
  Receive Date: 20230131
  Receipt Date: 20230131
  Transmission Date: 20230417
  Serious: Yes (Death)
  Sender: FDA-Public Use
  Company Number: CA-Ipsen Biopharmaceuticals, Inc.-2022-12222

PATIENT
  Age: 77 Year
  Sex: Male

DRUGS (7)
  1. LANREOTIDE ACETATE [Suspect]
     Active Substance: LANREOTIDE ACETATE
     Indication: Neuroendocrine tumour
     Route: 058
     Dates: start: 20181004, end: 20181113
  2. MORPHINE [Concomitant]
     Active Substance: MORPHINE
  3. ASPIRIN [Concomitant]
     Active Substance: ASPIRIN
  4. GLUCOSAMINE [Concomitant]
     Active Substance: GLUCOSAMINE
  5. OMEGA 3 [Concomitant]
     Active Substance: CAPSAICIN
  6. PANTOPRAZOLE SODIUM [Concomitant]
     Active Substance: PANTOPRAZOLE SODIUM
  7. MOTILIUM [Concomitant]
     Active Substance: DOMPERIDONE

REACTIONS (1)
  - Malignant neoplasm progression [Fatal]

NARRATIVE: CASE EVENT DATE: 20210522
